FAERS Safety Report 6150120-9 (Version None)
Quarter: 2009Q2

REPORT INFORMATION
  Report Type: 
  Country: None (occurrence: None)
  Receive Date: 20090407
  Receipt Date: 20090407
  Transmission Date: 20091009
  Serious: Yes (Hospitalization)
  Sender: FDA-Public Use
  Company Number: None

PATIENT
  Sex: Female
  Weight: 73.4827 kg

DRUGS (3)
  1. CISPLATIN [Suspect]
     Indication: BREAST CANCER METASTATIC
     Dosage: 25 MG/M2/QW/IV
     Route: 042
     Dates: start: 20090310, end: 20090324
  2. RAD001 [Suspect]
     Indication: BREAST CANCER METASTATIC
     Dosage: 30MG/QW/PO
     Route: 048
     Dates: start: 20090310, end: 20090324
  3. PACLITAXEL [Suspect]
     Dosage: 80 MG/M2/QW/IV
     Route: 042
     Dates: start: 20090310, end: 20090324

REACTIONS (7)
  - ASTHENIA [None]
  - CONFUSIONAL STATE [None]
  - FAILURE TO THRIVE [None]
  - HYPOKALAEMIA [None]
  - LEUKOPENIA [None]
  - THROMBOCYTOPENIA [None]
  - URINARY TRACT INFECTION [None]
